FAERS Safety Report 18702324 (Version 1)
Quarter: 2021Q1

REPORT INFORMATION
  Report Type: Spontaneous
  Country: US (occurrence: US)
  Receive Date: 20210105
  Receipt Date: 20210105
  Transmission Date: 20210419
  Serious: No
  Sender: FDA-Public Use
  Company Number: US-PFIZER INC-2020449387

PATIENT
  Age: 87 Year
  Sex: Female
  Weight: 81.19 kg

DRUGS (14)
  1. VITAMIN D [Concomitant]
     Active Substance: VITAMIN D NOS
     Dosage: 1 DF, DAILY
  2. IRON [Concomitant]
     Active Substance: IRON
     Dosage: 325 MG, DAILY DAILY WITH BREAKFAST
  3. FUROSEMIDE. [Concomitant]
     Active Substance: FUROSEMIDE
     Dosage: UNK
  4. VITAMIN C [Concomitant]
     Active Substance: ASCORBIC ACID
     Dosage: 1000 MG, DAILY
  5. PANTOPRAZOLE [Concomitant]
     Active Substance: PANTOPRAZOLE
     Dosage: 40 MG, DAILY
  6. ISOSORBIDE MONONITRATE. [Concomitant]
     Active Substance: ISOSORBIDE MONONITRATE
     Dosage: 3 MG, 1X/DAY (EVERY 24 HOURS)
  7. LOSARTAN. [Concomitant]
     Active Substance: LOSARTAN
     Dosage: 100 MG, DAILY
  8. METFORMIN [Concomitant]
     Active Substance: METFORMIN HYDROCHLORIDE
     Dosage: 500 MG, DAILY (DAILY WITH BREAKFAST)
  9. SPIRONOLACTONE. [Concomitant]
     Active Substance: SPIRONOLACTONE
     Dosage: 0.5 DF, DAILY (HALF A TABLET DAILY, HALF OF 25 MG)
  10. VFEND [Suspect]
     Active Substance: VORICONAZOLE
     Dosage: 50 MG
  11. VFEND [Suspect]
     Active Substance: VORICONAZOLE
     Dosage: 200 MG, 2X/DAY [BID (TWICE A DAY), QTY 60]
     Route: 048
  12. IPRATROPIUM/ALBUTEROL [Concomitant]
     Active Substance: ALBUTEROL\IPRATROPIUM
     Dosage: UNK UNK, AS NEEDED (3 ML EVERY 4 HOURS AS NEEDED; 0.5?2.5 MG PER 3 ML)
  13. ADVAIR HFA [Concomitant]
     Active Substance: FLUTICASONE PROPIONATE\SALMETEROL XINAFOATE
     Dosage: 2 DF, DAILY (INHALER, 2 PUFFS A DAY)
     Route: 055
  14. VITAMIN E [Concomitant]
     Active Substance: .ALPHA.-TOCOPHEROL
     Dosage: 180 MG, DAILY

REACTIONS (1)
  - Blood alkaline phosphatase increased [Unknown]
